FAERS Safety Report 10759576 (Version 1)
Quarter: 2015Q1

REPORT INFORMATION
  Report Type: Spontaneous
  Country: US (occurrence: US)
  Receive Date: 20150203
  Receipt Date: 20150203
  Transmission Date: 20150721
  Serious: No
  Sender: FDA-Public Use
  Company Number: US-GLAXOSMITHKLINE-US2015GSK013842

PATIENT
  Sex: Male

DRUGS (3)
  1. ROPINIROLE TABLETS [Suspect]
     Active Substance: ROPINIROLE
     Dosage: 1 MG, U
     Route: 065
  2. ROPINIROLE TABLETS [Suspect]
     Active Substance: ROPINIROLE
     Dosage: 3 MG, U
     Route: 065
  3. ROPINIROLE TABLETS [Suspect]
     Active Substance: ROPINIROLE
     Indication: PRODUCT USED FOR UNKNOWN INDICATION
     Dosage: 0.5 MG, U
     Route: 065

REACTIONS (1)
  - Hallucination [Unknown]
